FAERS Safety Report 18145701 (Version 1)
Quarter: 2020Q3

REPORT INFORMATION
  Report Type: Report from Study
  Country: NL (occurrence: NL)
  Receive Date: 20200813
  Receipt Date: 20200813
  Transmission Date: 20201103
  Serious: Yes (Hospitalization, Other)
  Sender: FDA-Public Use
  Company Number: NL-TEVA-2020-NL-1187512

PATIENT
  Age: 19 Year
  Sex: Female
  Weight: 54.3 kg

DRUGS (24)
  1. PANOBINOSTAT [Suspect]
     Active Substance: PANOBINOSTAT
     Dosage: 40 MG, TIW (THREE TIMES WEEKLY (2 WEEKS ON AND 2 WEEKS OFF)
     Route: 048
     Dates: start: 20191202, end: 20200131
  2. HIDROCORTISON [Concomitant]
     Active Substance: HYDROCORTISONE
     Indication: PRODUCT USED FOR UNKNOWN INDICATION
     Dosage: 10 MG, PRN MAX 4DD
     Route: 048
  3. OMEPRAZOLE. [Concomitant]
     Active Substance: OMEPRAZOLE
     Dosage: 20 MG, BID
     Route: 065
     Dates: start: 20180702, end: 20191119
  4. FUROSEMIDE. [Concomitant]
     Active Substance: FUROSEMIDE
     Indication: OEDEMA
     Dosage: 20 MILLIGRAM DAILY;
     Route: 048
     Dates: end: 20191018
  5. COTRIMOXAZOLE [Concomitant]
     Active Substance: SULFAMETHOXAZOLE\TRIMETHOPRIM
     Indication: PROPHYLAXIS
     Dosage: 960 MILLIGRAM DAILY;
     Route: 065
     Dates: start: 20191018, end: 20191119
  6. ESOMEPRAZOL [Concomitant]
     Active Substance: ESOMEPRAZOLE
     Indication: ABDOMINAL PAIN UPPER
     Dosage: 40 MILLIGRAM DAILY;
     Route: 048
     Dates: start: 20191201, end: 20200201
  7. DICLOFENAC [Concomitant]
     Active Substance: DICLOFENAC
     Indication: OEDEMA
     Dosage: 50 MG, BID, UNIT DOSE: 100 MG
     Route: 048
  8. DIPIDOLOR [Concomitant]
     Active Substance: PIRITRAMIDE
     Indication: PRODUCT USED FOR UNKNOWN INDICATION
     Route: 065
  9. PANOBINOSTAT [Suspect]
     Active Substance: PANOBINOSTAT
     Indication: GLIOMA
     Dosage: 40 MG, TIW
     Route: 048
     Dates: start: 20191018, end: 20200131
  10. OMEPRAZOLE. [Concomitant]
     Active Substance: OMEPRAZOLE
     Indication: ABDOMINAL PAIN UPPER
     Dosage: 20 MILLIGRAM DAILY;
  11. TOLPERISONE [Concomitant]
     Active Substance: TOLPERISONE
     Indication: MUSCLE SPASMS
     Dosage: 50 MG, TID; UNIT DOSE: 150 MG
     Route: 048
  12. EVEROLIMUS. [Suspect]
     Active Substance: EVEROLIMUS
     Indication: PRODUCT USED FOR UNKNOWN INDICATION
     Dosage: 5 MILLIGRAM DAILY;
     Route: 065
     Dates: start: 20191115
  13. TRAMADOL. [Concomitant]
     Active Substance: TRAMADOL
     Indication: PAIN
     Dosage: 50 MG, BID, UNIT DOSE 100 MG
     Route: 065
     Dates: start: 20191115, end: 20200202
  14. DALTEPARIN [Concomitant]
     Active Substance: DALTEPARIN
     Indication: THROMBOSIS
     Dosage: 12500 IU (INTERNATIONAL UNIT) DAILY;
     Route: 058
  15. EUTHYROX [Concomitant]
     Active Substance: LEVOTHYROXINE SODIUM
     Dosage: 125 MILLIGRAM DAILY;
     Route: 048
     Dates: start: 20180920, end: 20191119
  16. SOLIFENACINE [Concomitant]
     Active Substance: SOLIFENACIN
     Indication: URINARY INCONTINENCE
     Dosage: 5 MILLIGRAM DAILY;
     Route: 048
     Dates: start: 20190404, end: 20200201
  17. PARACETAMOL [Concomitant]
     Active Substance: ACETAMINOPHEN
     Indication: PAIN
     Dosage: 1000 MG, TID; UNIT DOSE: 3000 MG
     Route: 048
  18. MACROGOL [Concomitant]
     Active Substance: POLYETHYLENE GLYCOLS
     Indication: PRODUCT USED FOR UNKNOWN INDICATION
     Dosage: 10 GRAM DAILY;
     Route: 048
  19. VITAMIN D [Concomitant]
     Active Substance: VITAMIN D NOS
     Indication: PRODUCT USED FOR UNKNOWN INDICATION
     Dosage: 600 IU (INTERNATIONAL UNIT) DAILY;
     Route: 048
  20. NITROFURANTOIN. [Concomitant]
     Active Substance: NITROFURANTOIN
     Indication: PROPHYLAXIS
     Dosage: 100 MILLIGRAM DAILY;
     Route: 048
  21. CELECOXIB. [Concomitant]
     Active Substance: CELECOXIB
     Indication: MYALGIA
     Dosage: 100 MG, BID, UNIT DOSE: 200 MG
     Route: 048
  22. BACLOFEN. [Concomitant]
     Active Substance: BACLOFEN
     Indication: MUSCLE SPASMS
     Dosage: 3 DOSAGE FORMS DAILY; 3 DF, QD (5?5?10 MG)
     Route: 048
  23. MICROGYNON [Concomitant]
     Active Substance: ETHINYL ESTRADIOL\LEVONORGESTREL ACETATE
     Indication: PROPHYLAXIS
     Dosage: 1 DOSAGE FORMS DAILY;
     Route: 048
  24. CLONIDINE. [Concomitant]
     Active Substance: CLONIDINE
     Indication: PRODUCT USED FOR UNKNOWN INDICATION
     Route: 065

REACTIONS (53)
  - Escherichia urinary tract infection [Unknown]
  - Vena cava thrombosis [Recovering/Resolving]
  - Odynophagia [Not Recovered/Not Resolved]
  - Ileus paralytic [Recovered/Resolved]
  - Nausea [Recovered/Resolved]
  - Haematemesis [Recovered/Resolved]
  - Thrombocytopenia [Unknown]
  - Vomiting [Recovered/Resolved]
  - Supraventricular tachycardia [Unknown]
  - Fatigue [Recovered/Resolved]
  - Blood phosphorus decreased [Unknown]
  - Abdominal pain [Recovered/Resolved]
  - Vomiting [Not Recovered/Not Resolved]
  - Abdominal pain upper [Not Recovered/Not Resolved]
  - Gastritis [Unknown]
  - Chills [Not Recovered/Not Resolved]
  - Eye pain [Not Recovered/Not Resolved]
  - Gastroenteritis viral [Unknown]
  - Nausea [Not Recovered/Not Resolved]
  - Inflammation [Unknown]
  - Eructation [Not Recovered/Not Resolved]
  - Disseminated intravascular coagulation [Recovering/Resolving]
  - Muscle spasms [Not Recovered/Not Resolved]
  - Hypophosphataemia [Unknown]
  - Blood magnesium decreased [Unknown]
  - Electrocardiogram ST segment abnormal [Recovered/Resolved]
  - Tremor [Not Recovered/Not Resolved]
  - Impaired gastric emptying [Recovered/Resolved]
  - Pyelonephritis [Recovered/Resolved]
  - Diplopia [Recovered/Resolved]
  - Blood creatinine decreased [Unknown]
  - Dry skin [Not Recovered/Not Resolved]
  - Epistaxis [Recovered/Resolved]
  - Candida infection [Unknown]
  - Diarrhoea [Not Recovered/Not Resolved]
  - Hypokalaemia [Unknown]
  - Dry mouth [Not Recovered/Not Resolved]
  - Tachycardia [Not Recovered/Not Resolved]
  - Malaise [Not Recovered/Not Resolved]
  - Neutrophil count decreased [Unknown]
  - Influenza like illness [Recovered/Resolved]
  - Concomitant disease aggravated [Not Recovered/Not Resolved]
  - Oesophagitis [Recovered/Resolved]
  - Pelvic venous thrombosis [Recovering/Resolving]
  - Increased tendency to bruise [Recovered/Resolved]
  - Rash [Not Recovered/Not Resolved]
  - Enteritis [Recovered/Resolved]
  - Neck pain [Not Recovered/Not Resolved]
  - Eczema [Not Recovered/Not Resolved]
  - Infection [Unknown]
  - Musculoskeletal pain [Not Recovered/Not Resolved]
  - White blood cell count decreased [Unknown]
  - Fatigue [Recovered/Resolved]

NARRATIVE: CASE EVENT DATE: 20191018
